FAERS Safety Report 5197514-6 (Version None)
Quarter: 2006Q4

REPORT INFORMATION
  Report Type: 
  Country: None (occurrence: None)
  Receive Date: 20060926
  Receipt Date: 20060420
  Transmission Date: 20070319
  Serious: Yes (Other)
  Sender: FDA-Public Use
  Company Number: 06-000347

PATIENT
  Age: 26 Year
  Sex: Female

DRUGS (1)
  1. DORYX [Suspect]
     Indication: ACNE
     Dosage: 100 MG, BID, ORAL
     Route: 048
     Dates: start: 20060119, end: 20060406

REACTIONS (4)
  - BENIGN INTRACRANIAL HYPERTENSION [None]
  - DIZZINESS [None]
  - ILLUSION [None]
  - SYNCOPE [None]
